FAERS Safety Report 16370433 (Version 1)
Quarter: 2019Q2

REPORT INFORMATION
  Report Type: Report from Study
  Country: IT (occurrence: IT)
  Receive Date: 20190530
  Receipt Date: 20190530
  Transmission Date: 20190711
  Serious: Yes (Other)
  Sender: FDA-Public Use
  Company Number: IT-ACCORD-129872

PATIENT
  Age: 32 Year
  Sex: Male
  Weight: 70 kg

DRUGS (6)
  1. FRISIUM [Concomitant]
     Active Substance: CLOBAZAM
     Route: 048
     Dates: start: 20141122
  2. LEVETIRACETAM ACCORD [Suspect]
     Active Substance: LEVETIRACETAM
     Indication: PARTIAL SEIZURES
     Route: 048
     Dates: start: 20150904, end: 20190312
  3. TOPAMAX [Concomitant]
     Active Substance: TOPIRAMATE
     Indication: PARTIAL SEIZURES
     Route: 048
     Dates: start: 20180901
  4. VIMPAT [Concomitant]
     Active Substance: LACOSAMIDE
     Indication: PARTIAL SEIZURES
     Dosage: 200 MG
     Route: 048
     Dates: start: 20180110
  5. DEPAKIN [Suspect]
     Active Substance: VALPROATE SODIUM
     Indication: PARTIAL SEIZURES
     Route: 048
     Dates: start: 20190306, end: 20190308
  6. DEPAKIN CHRONO [Suspect]
     Active Substance: VALPROIC ACID
     Indication: PARTIAL SEIZURES
     Route: 048
     Dates: start: 20190306, end: 20190308

REACTIONS (3)
  - Hyperammonaemic encephalopathy [Recovering/Resolving]
  - Decreased appetite [Recovering/Resolving]
  - Somnolence [Recovering/Resolving]

NARRATIVE: CASE EVENT DATE: 20190308
